FAERS Safety Report 18799586 (Version 1)
Quarter: 2021Q1

REPORT INFORMATION
  Report Type: Spontaneous
  Country: US (occurrence: US)
  Receive Date: 20210127
  Receipt Date: 20210127
  Transmission Date: 20210419
  Serious: Yes (Death)
  Sender: FDA-Public Use
  Company Number: None

PATIENT
  Age: 62 Year
  Sex: Male

DRUGS (1)
  1. REVLIMID [Suspect]
     Active Substance: LENALIDOMIDE
     Indication: PLASMA CELL MYELOMA
     Route: 048
     Dates: start: 20200928, end: 20201218

REACTIONS (5)
  - Unresponsive to stimuli [None]
  - COVID-19 pneumonia [None]
  - Troponin increased [None]
  - SARS-CoV-2 test positive [None]
  - Ventricular fibrillation [None]

NARRATIVE: CASE EVENT DATE: 20201218
